FAERS Safety Report 23712757 (Version 1)
Quarter: 2024Q2

REPORT INFORMATION
  Report Type: Spontaneous
  Country: US (occurrence: None)
  Receive Date: 20240405
  Receipt Date: 20240405
  Transmission Date: 20240716
  Serious: Yes (Other)
  Sender: FDA-Public Use
  Company Number: None

PATIENT
  Age: 45 Year
  Sex: Female
  Weight: 105.75 kg

DRUGS (5)
  1. CHLORTHALIDONE [Suspect]
     Active Substance: CHLORTHALIDONE
     Indication: Hypertension
     Dosage: 30 TABLETS DAILY ORAL?
     Route: 048
     Dates: start: 20240323
  2. MVT [Concomitant]
  3. ALPRAZOLAM [Concomitant]
  4. zyrtec [Concomitant]
  5. FLONASE [Concomitant]
     Active Substance: FLUTICASONE PROPIONATE

REACTIONS (3)
  - Paraesthesia [None]
  - Dizziness [None]
  - Hypokalaemia [None]

NARRATIVE: CASE EVENT DATE: 20240330
